FAERS Safety Report 14318752 (Version 1)
Quarter: 2017Q4

REPORT INFORMATION
  Report Type: Report from Study
  Country: GB (occurrence: GB)
  Receive Date: 20171222
  Receipt Date: 20171222
  Transmission Date: 20180321
  Serious: Yes (Other)
  Sender: FDA-Public Use
  Company Number: GB-PURDUE PHARMA-GBR-2017-0051659

PATIENT
  Age: 27 Year
  Sex: Female

DRUGS (1)
  1. MORPHINE SULFATE. [Suspect]
     Active Substance: MORPHINE SULFATE
     Indication: ANAESTHESIA
     Route: 065

REACTIONS (4)
  - Angioedema [Unknown]
  - Drug hypersensitivity [Unknown]
  - Nausea [Unknown]
  - Urticaria [Unknown]
